FAERS Safety Report 12283928 (Version 1)
Quarter: 2016Q2

REPORT INFORMATION
  Report Type: Spontaneous
  Country: US (occurrence: US)
  Receive Date: 20160419
  Receipt Date: 20160419
  Transmission Date: 20160815
  Serious: No
  Sender: FDA-Public Use
  Company Number: US-BANPHARM-20164564

PATIENT
  Age: 96 Year
  Sex: Male

DRUGS (2)
  1. NEUROTIN [Concomitant]
     Active Substance: GABAPENTIN
  2. ALEVE [Suspect]
     Active Substance: NAPROXEN SODIUM
     Dosage: 3 DF, IN 24 HRS,
     Route: 048

REACTIONS (1)
  - Abdominal discomfort [Recovered/Resolved]

NARRATIVE: CASE EVENT DATE: 20160106
